FAERS Safety Report 5475336-6 (Version None)
Quarter: 2007Q4

REPORT INFORMATION
  Report Type: 
  Country: None (occurrence: None)
  Receive Date: 20071001
  Receipt Date: 20070918
  Transmission Date: 20080405
  Serious: Yes (Hospitalization)
  Sender: FDA-Public Use
  Company Number: 2007SP002914

PATIENT
  Age: 57 Year
  Sex: Male
  Weight: 140.5 kg

DRUGS (12)
  1. XOPENEX HFA [Suspect]
     Indication: CHRONIC OBSTRUCTIVE PULMONARY DISEASE
     Dosage: ;PRN;INHALATION
     Route: 055
  2. VALIUM [Concomitant]
  3. ASPIRIN [Concomitant]
  4. NEXIUM [Concomitant]
  5. ATORVASTATIN CALCIUM [Concomitant]
  6. ZANAFLEX [Concomitant]
  7. K-DUR 10 [Concomitant]
  8. ALLOPURINOL [Concomitant]
  9. LORTAB [Concomitant]
  10. ZOLOFT [Concomitant]
  11. ATENOLOL [Concomitant]
  12. ALTACE [Concomitant]

REACTIONS (7)
  - BLOOD UREA INCREASED [None]
  - CONDITION AGGRAVATED [None]
  - HYPOKALAEMIA [None]
  - HYPOMAGNESAEMIA [None]
  - LEUKOCYTOSIS [None]
  - NEUTROPHIL PERCENTAGE DECREASED [None]
  - OEDEMA PERIPHERAL [None]
